FAERS Safety Report 8952317 (Version 1)
Quarter: 2012Q4

REPORT INFORMATION
  Report Type: 
  Country: US (occurrence: US)
  Receive Date: 20121205
  Receipt Date: 20121205
  Transmission Date: 20130627
  Serious: No
  Sender: FDA-Public Use
  Company Number: US-009507513-1212USA000965

PATIENT
  Sex: Female

DRUGS (3)
  1. REMERON [Suspect]
     Indication: DEPRESSION
     Dosage: 45 mg, qd
     Route: 048
     Dates: start: 201101
  2. XANAX [Concomitant]
     Dosage: UNK
  3. TAMOXIFEN CITRATE [Concomitant]
     Dosage: UNK

REACTIONS (2)
  - Increased appetite [Not Recovered/Not Resolved]
  - Weight increased [Not Recovered/Not Resolved]
